FAERS Safety Report 8824725 (Version 2)
Quarter: 2013Q4

REPORT INFORMATION
  Report Type: Spontaneous
  Country: US (occurrence: US)
  Receive Date: 20121004
  Receipt Date: 20131024
  Transmission Date: 20140711
  Serious: Yes (Hospitalization, Other)
  Sender: FDA-Public Use
  Company Number: US-PFIZER INC-2012245056

PATIENT
  Age: 79 Year
  Sex: Female

DRUGS (4)
  1. ATENOLOL [Suspect]
     Dosage: UNK
     Route: 048
  2. ATACAND [Suspect]
     Dosage: TWICE A DAY IF NEEDED
     Route: 048
  3. CRESTOR [Suspect]
     Dosage: UNK
     Route: 048
  4. NEXIUM [Concomitant]
     Dosage: UNK
     Route: 048

REACTIONS (10)
  - Concussion [Unknown]
  - Face injury [Unknown]
  - Accident [Unknown]
  - Visual impairment [Unknown]
  - Cataract [Unknown]
  - Malaise [Unknown]
  - Nausea [Unknown]
  - Abdominal pain upper [Unknown]
  - Hearing impaired [Unknown]
  - Hypertension [Unknown]
